FAERS Safety Report 4867130-1 (Version None)
Quarter: 2005Q4

REPORT INFORMATION
  Report Type: 
  Country: None (occurrence: None)
  Receive Date: 20051222
  Receipt Date: 20020413
  Transmission Date: 20060501
  Serious: Yes (Hospitalization, Other)
  Sender: FDA-Public Use
  Company Number: 8-98356-003X

PATIENT
  Age: 63 Year
  Sex: Female

DRUGS (1)
  1. GEMTUZUMAB OZOGAMICIN (GEMTUZUMAB OZOGAMICIN, INJECTION) [Suspect]
     Indication: ACUTE MYELOID LEUKAEMIA
     Dosage: CYCLE 1 (02-NOV-98):  9 MG/M(2), CYCLE 2 (26-NOV-98):  9 MG/M(2) INTRAVENOUS
     Route: 042
     Dates: start: 19981102, end: 19981126

REACTIONS (2)
  - PHARYNGOLARYNGEAL PAIN [None]
  - SEPSIS [None]
